FAERS Safety Report 17889544 (Version 1)
Quarter: 2020Q2

REPORT INFORMATION
  Report Type: Spontaneous
  Country: US (occurrence: US)
  Receive Date: 20200612
  Receipt Date: 20200612
  Transmission Date: 20200714
  Serious: Yes (Other)
  Sender: FDA-Public Use
  Company Number: None

PATIENT
  Age: 64 Year
  Sex: Male
  Weight: 85 kg

DRUGS (1)
  1. HYRDOXYCHLOROQUINE (HYDROXYCHLOROQUINE SO4 200MG TAB) [Suspect]
     Active Substance: HYDROXYCHLOROQUINE SULFATE
     Indication: COVID-19 TREATMENT
     Route: 048
     Dates: start: 20200325, end: 20200327

REACTIONS (5)
  - Hypotension [None]
  - Supraventricular tachycardia [None]
  - Diarrhoea [None]
  - Palpitations [None]
  - Atrial fibrillation [None]
